FAERS Safety Report 26122225 (Version 1)
Quarter: 2025Q4

REPORT INFORMATION
  Report Type: Spontaneous
  Country: CA (occurrence: CA)
  Receive Date: 20251204
  Receipt Date: 20251204
  Transmission Date: 20260117
  Serious: No
  Sender: PFIZER
  Company Number: CA-PFIZER INC-202500230641

PATIENT
  Age: 27 Year
  Sex: Male

DRUGS (1)
  1. ABRILADA [Suspect]
     Active Substance: ADALIMUMAB-AFZB
     Indication: Crohn^s disease
     Dosage: 1 DF, 160 MG ON WEEK 0, 80 MG ON WEEK 2, THEN 40 MG EVERY OTHER WEEK FROM WEEK 4
     Route: 058
     Dates: start: 20250205

REACTIONS (3)
  - Device mechanical issue [Unknown]
  - Device deployment issue [Unknown]
  - Drug dose omission by device [Unknown]

NARRATIVE: CASE EVENT DATE: 20250101
